FAERS Safety Report 6715719-7 (Version None)
Quarter: 2010Q2

REPORT INFORMATION
  Report Type: 
  Country: None (occurrence: None)
  Receive Date: 20100507
  Receipt Date: 20100414
  Transmission Date: 20101027
  Serious: Yes (Other)
  Sender: FDA-Public Use
  Company Number: TN-PFIZER INC-2010042309

PATIENT
  Age: 90 Year
  Sex: Female

DRUGS (1)
  1. AMLODIPINE BESYLATE [Suspect]
     Indication: BLOOD PRESSURE
     Dosage: 10 MG, 1X/DAY

REACTIONS (1)
  - TOXIC SKIN ERUPTION [None]
